FAERS Safety Report 7216847-2 (Version None)
Quarter: 2011Q1

REPORT INFORMATION
  Report Type: 
  Country: None (occurrence: None)
  Receive Date: 20110104
  Receipt Date: 20110104
  Transmission Date: 20110831
  Serious: Yes (Other)
  Sender: FDA-Public Use
  Company Number: None

PATIENT
  Sex: Male

DRUGS (1)
  1. SINGULAIR [Suspect]
     Indication: HYPERSENSITIVITY
     Dosage: 4MG QD PO
     Route: 048

REACTIONS (4)
  - AGGRESSION [None]
  - INSOMNIA [None]
  - MOOD SWINGS [None]
  - ANXIETY [None]
